FAERS Safety Report 21484854 (Version 2)
Quarter: 2022Q4

REPORT INFORMATION
  Report Type: Other
  Country: CN (occurrence: CN)
  Receive Date: 20221020
  Receipt Date: 20221027
  Transmission Date: 20230112
  Serious: Yes (Other)
  Sender: FDA-Public Use
  Company Number: CN-BoehringerIngelheim-2022-BI-197030

PATIENT

DRUGS (3)
  1. ALTEPLASE [Suspect]
     Active Substance: ALTEPLASE
     Indication: Cerebral infarction
     Dosage: 0.9 MG/KG ALTEPLASE DISSOLVED IN 100 ML 0.9% NACL SOLUTION, 10% OF THE SOLUTION WAS INJECTED FIRST,
     Route: 042
  2. ALTEPLASE [Suspect]
     Active Substance: ALTEPLASE
     Dosage: FOLLOWED BY INTRAVENOUS PUMP INJECTION OF THE REMAINING 90% SOLUTION, WAS COMPLETED WITHIN 1 HOUR.
     Route: 042
  3. ASPIRIN [Concomitant]
     Active Substance: ASPIRIN
     Indication: Product used for unknown indication
     Dosage: 2 TABLETS
     Route: 048

REACTIONS (3)
  - Cerebral haematoma [Unknown]
  - Cerebral mass effect [Unknown]
  - Off label use [Unknown]
